FAERS Safety Report 4525959-3 (Version None)
Quarter: 2004Q4

REPORT INFORMATION
  Report Type: 
  Country: None (occurrence: None)
  Receive Date: 20041213
  Receipt Date: 20041213
  Transmission Date: 20050328
  Serious: Yes (Hospitalization)
  Sender: FDA-Public Use
  Company Number: None

PATIENT
  Age: 57 Year
  Sex: Female
  Weight: 53.5244 kg

DRUGS (7)
  1. MOBIC [Suspect]
     Indication: ARTHRITIS
     Dosage: 7.5 MG ONCE DAILY ORAL
     Route: 048
     Dates: start: 20040801, end: 20040919
  2. MOBIC [Suspect]
     Indication: FIBROMYALGIA
     Dosage: 7.5 MG ONCE DAILY ORAL
     Route: 048
     Dates: start: 20040801, end: 20040919
  3. VITAMINS AND MINERALS [Concomitant]
  4. AMBIEN [Concomitant]
  5. ZANTAC [Concomitant]
  6. XANAX [Concomitant]
  7. MOBIC [Concomitant]

REACTIONS (2)
  - BLOOD PRESSURE INCREASED [None]
  - MYOCARDIAL INFARCTION [None]
